FAERS Safety Report 9157045 (Version 1)
Quarter: 2013Q1

REPORT INFORMATION
  Report Type: Spontaneous
  Country: US (occurrence: US)
  Receive Date: 20130312
  Receipt Date: 20130312
  Transmission Date: 20140127
  Serious: No
  Sender: FDA-Public Use
  Company Number: US-PFIZER INC-2013080633

PATIENT
  Age: 63 Year
  Sex: Male
  Weight: 95.24 kg

DRUGS (2)
  1. IBUPROFEN [Suspect]
     Dosage: UNK
     Dates: end: 1992
  2. ACETAMINOPHEN [Suspect]
     Dosage: UNK

REACTIONS (1)
  - Drug ineffective [Unknown]
